FAERS Safety Report 5425611-6 (Version None)
Quarter: 2007Q3

REPORT INFORMATION
  Report Type: 
  Country: None (occurrence: None)
  Receive Date: 20070824
  Receipt Date: 20070814
  Transmission Date: 20080115
  Serious: Yes (Other)
  Sender: FDA-Public Use
  Company Number: DE-PFIZER INC-2007067789

PATIENT
  Age: 81 Year
  Sex: Male

DRUGS (1)
  1. LYRICA [Suspect]
     Indication: CAUDA EQUINA SYNDROME
     Dosage: DAILY DOSE:225MG
     Route: 048

REACTIONS (1)
  - ARRHYTHMIA [None]
